FAERS Safety Report 9740777 (Version 1)
Quarter: 2013Q4

REPORT INFORMATION
  Report Type: Spontaneous
  Country: US (occurrence: US)
  Receive Date: 20131209
  Receipt Date: 20131209
  Transmission Date: 20140711
  Serious: Yes (Other)
  Sender: FDA-Public Use
  Company Number: US-PFIZER INC-2013348448

PATIENT
  Age: 65 Year
  Sex: Female

DRUGS (8)
  1. SUTENT [Suspect]
     Indication: RENAL CANCER
     Dosage: 50 MG, 4 WEEKS ON AND 2 WEEKS OFF
     Route: 048
     Dates: start: 20130928
  2. LIPITOR [Concomitant]
     Dosage: UNK
  3. CALTRATE [Concomitant]
     Dosage: UNK
  4. CENTRUM SILVER [Concomitant]
     Dosage: UNK
  5. XANAX [Concomitant]
     Dosage: UNK
  6. TORSEMIDE [Concomitant]
     Dosage: UNK
  7. AMLODIPINE [Concomitant]
     Dosage: UNK
  8. LOSARTAN [Concomitant]
     Dosage: UNK

REACTIONS (7)
  - Fatigue [Unknown]
  - Dysgeusia [Unknown]
  - Skin exfoliation [Unknown]
  - Rash [Unknown]
  - Nausea [Unknown]
  - Stomatitis [Unknown]
  - Hypertension [Unknown]
